FAERS Safety Report 20008044 (Version 2)
Quarter: 2021Q4

REPORT INFORMATION
  Report Type: Spontaneous
  Country: US (occurrence: US)
  Receive Date: 20211029
  Receipt Date: 20211203
  Transmission Date: 20220303
  Serious: Yes (Hospitalization, Other)
  Sender: FDA-Public Use
  Company Number: US-DRREDDYS-SPO/USA/21/0143011

PATIENT
  Age: 59 Year
  Sex: Female

DRUGS (1)
  1. SUMATRIPTAN SUCCINATE [Suspect]
     Active Substance: SUMATRIPTAN SUCCINATE
     Indication: Migraine
     Route: 048

REACTIONS (5)
  - Acute coronary syndrome [Recovering/Resolving]
  - Transient global amnesia [Recovering/Resolving]
  - Vasoconstriction [Recovering/Resolving]
  - Transient ischaemic attack [Recovering/Resolving]
  - Acute myocardial infarction [Recovered/Resolved]
